FAERS Safety Report 9160493 (Version 3)
Quarter: 2013Q3

REPORT INFORMATION
  Report Type: Report from Study
  Country: AU (occurrence: AU)
  Receive Date: 20130313
  Receipt Date: 20130712
  Transmission Date: 20140515
  Serious: Yes (Other)
  Sender: FDA-Public Use
  Company Number: PHHY2013AU013264

PATIENT
  Age: 70 Year
  Sex: Female

DRUGS (8)
  1. EXJADE [Suspect]
     Indication: MYELODYSPLASTIC SYNDROME
     Dosage: 1000 MG
     Route: 048
     Dates: start: 20130201
  2. EXJADE [Suspect]
     Dosage: 500 MG, DAILY
     Route: 048
     Dates: start: 20130205
  3. APO OMEPRAZOLE [Concomitant]
     Dosage: UNK UKN, UNK
  4. DIABEX [Concomitant]
     Dosage: 60 MG, BID
  5. VERACAP [Concomitant]
     Dosage: 240 MG, UNK
  6. PHYSIOTENS [Concomitant]
     Dosage: 400 MG,
  7. MINIPRESS [Concomitant]
     Dosage: 100 MG, UNK
  8. TRANEXAMIC ACID [Concomitant]

REACTIONS (10)
  - Blood pressure systolic increased [Unknown]
  - Heart rate increased [Unknown]
  - Red blood cell count decreased [Unknown]
  - Blood glucose increased [Unknown]
  - Dyspnoea [Unknown]
  - Frequent bowel movements [Recovered/Resolved]
  - Diarrhoea [Unknown]
  - Nausea [Unknown]
  - Abdominal pain upper [Unknown]
  - Dizziness [Unknown]
